FAERS Safety Report 4780926-X (Version None)
Quarter: 2005Q3

REPORT INFORMATION
  Report Type: 
  Country: None (occurrence: None)
  Receive Date: 20050926
  Receipt Date: 20050909
  Transmission Date: 20060218
  Serious: Yes (Other)
  Sender: FDA-Public Use
  Company Number: B0394505A

PATIENT
  Age: 43 Year
  Sex: Male

DRUGS (3)
  1. FLOVENT [Suspect]
     Indication: ASTHMA
     Dosage: 250 UG, TWICE PER DAY; INHALED
     Route: 055
  2. LOPINAVIR + RITONAVIR (FORMULATION UNKNOWN) (LOPINAVIR + RITONAVIR) [Suspect]
     Indication: HIV INFECTION
  3. ABACAVIR SULPHATE [Concomitant]

REACTIONS (9)
  - ABDOMINAL OBESITY [None]
  - ADRENAL SUPPRESSION [None]
  - CONTUSION [None]
  - CUSHING'S SYNDROME [None]
  - DRUG INTERACTION [None]
  - LIPODYSTROPHY ACQUIRED [None]
  - MUSCLE SPASMS [None]
  - SKIN ATROPHY [None]
  - UNEVALUABLE EVENT [None]
